FAERS Safety Report 4299765-1 (Version None)
Quarter: 2004Q1

REPORT INFORMATION
  Report Type: 
  Country: None (occurrence: None)
  Receive Date: 20040126
  Receipt Date: 20031113
  Transmission Date: 20041129
  Serious: No
  Sender: FDA-Public Use
  Company Number: USA031152569

PATIENT
  Age: 37 Year
  Sex: Female

DRUGS (1)
  1. STRATTERA [Suspect]
     Dosage: 60 MG/DAY
     Dates: start: 20030901

REACTIONS (4)
  - DIZZINESS [None]
  - NASOPHARYNGITIS [None]
  - SENSATION OF BLOCK IN EAR [None]
  - VERTIGO [None]
